FAERS Safety Report 6496383-1 (Version None)
Quarter: 2009Q4

REPORT INFORMATION
  Report Type: 
  Country: None (occurrence: None)
  Receive Date: 20091214
  Receipt Date: 20091207
  Transmission Date: 20100525
  Serious: Yes (Other)
  Sender: FDA-Public Use
  Company Number: PHHO2009CA11341

PATIENT
  Sex: Male
  Weight: 79.4 kg

DRUGS (5)
  1. CERTICAN [Suspect]
     Indication: LIVER TRANSPLANT
     Dosage: 1 MG DAILY
     Route: 048
     Dates: start: 20090805
  2. TACROLIMUS COMP-TAC+ [Suspect]
     Indication: LIVER TRANSPLANT
     Dosage: 3 MG DAILY
     Route: 048
     Dates: start: 20090707
  3. CILAZAPRIL [Suspect]
     Indication: HYPERTENSION
     Dosage: 2.5 MG, QD
     Route: 048
     Dates: start: 20090903
  4. PARIET [Concomitant]
  5. PREDNISOLONE [Concomitant]

REACTIONS (4)
  - RETINAL DETACHMENT [None]
  - VISUAL ACUITY REDUCED [None]
  - VITRECTOMY [None]
  - VITREOUS FLOATERS [None]
